FAERS Safety Report 5991839-X (Version None)
Quarter: 2008Q4

REPORT INFORMATION
  Report Type: 
  Country: None (occurrence: None)
  Receive Date: 20081202
  Receipt Date: 20080207
  Transmission Date: 20090506
  Serious: Yes (Disabling, Other)
  Sender: FDA-Public Use
  Company Number: WAES 0509USA04777

PATIENT
  Age: 66 Year
  Sex: Female
  Weight: 141.5223 kg

DRUGS (13)
  1. FOSAMAX [Suspect]
     Indication: OSTEOPOROSIS
     Dosage: 70 MG/DAILY/PO
     Route: 048
     Dates: start: 20021011, end: 20020101
  2. FOSAMAX [Suspect]
     Indication: OSTEOPOROSIS
     Dosage: 70 MG/DAILY/PO
     Route: 048
     Dates: start: 20040301, end: 20050101
  3. FOSAMAX [Suspect]
     Indication: OSTEOPOROSIS
     Dosage: 70 MG/DAILY/PO
     Route: 048
     Dates: start: 20030421
  4. ACTOS [Concomitant]
  5. MULTIVITAMIN [Concomitant]
  6. CALCIUM (UNSPECIFIED) [Concomitant]
  7. INSULIN [Concomitant]
  8. LYSINE [Concomitant]
  9. NIACIN [Concomitant]
  10. SELENIUM (UNSPECIFIED) [Concomitant]
  11. TRIMETHOPRIM [Concomitant]
  12. VITAMIN E [Concomitant]
  13. ZINC (UNSPECIFIED) [Concomitant]

REACTIONS (46)
  - ABDOMINAL DISCOMFORT [None]
  - ACCIDENTAL OVERDOSE [None]
  - ADVERSE DRUG REACTION [None]
  - ANXIETY [None]
  - ARTHRALGIA [None]
  - ASTHENIA [None]
  - ATYPICAL MYCOBACTERIAL INFECTION [None]
  - BACK PAIN [None]
  - BACTERIAL INFECTION [None]
  - BALANCE DISORDER [None]
  - BLOOD CREATININE INCREASED [None]
  - BLOOD GLUCOSE INCREASED [None]
  - BLOOD UREA INCREASED [None]
  - BONE DENSITY DECREASED [None]
  - BONE LESION [None]
  - CARDIAC MURMUR [None]
  - CATARACT [None]
  - CONJUNCTIVITIS [None]
  - CONSTIPATION [None]
  - DEPRESSION [None]
  - DIZZINESS [None]
  - DIZZINESS POSTURAL [None]
  - DRUG INTOLERANCE [None]
  - DYSPHAGIA [None]
  - EPIGASTRIC DISCOMFORT [None]
  - FALL [None]
  - FLANK PAIN [None]
  - INAPPROPRIATE SCHEDULE OF DRUG ADMINISTRATION [None]
  - LUNG NEOPLASM [None]
  - MASS [None]
  - NAUSEA [None]
  - OEDEMA PERIPHERAL [None]
  - OSTEOMYELITIS [None]
  - OSTEONECROSIS [None]
  - PAIN IN EXTREMITY [None]
  - PSEUDOMONAS INFECTION [None]
  - RASH [None]
  - RESTLESS LEGS SYNDROME [None]
  - SKIN ULCER [None]
  - SPINAL OSTEOARTHRITIS [None]
  - STAPHYLOCOCCAL SKIN INFECTION [None]
  - THYROID NEOPLASM [None]
  - TOOTH ABSCESS [None]
  - TOOTH FRACTURE [None]
  - TYPE 2 DIABETES MELLITUS [None]
  - WEIGHT INCREASED [None]
